FAERS Safety Report 14485758 (Version 2)
Quarter: 2018Q1

REPORT INFORMATION
  Report Type: Spontaneous
  Country: US (occurrence: US)
  Receive Date: 20180205
  Receipt Date: 20180221
  Transmission Date: 20180509
  Serious: Yes (Other)
  Sender: FDA-Public Use
  Company Number: US-JNJFOC-20180131007

PATIENT
  Age: 77 Year
  Sex: Female
  Weight: 92.99 kg

DRUGS (9)
  1. CITRACAL [Concomitant]
     Active Substance: CALCIUM CITRATE
     Indication: SUPPLEMENTATION THERAPY
     Route: 065
  2. CITRACAL-D [Concomitant]
     Indication: SUPPLEMENTATION THERAPY
     Route: 065
  3. CALCIUM W/MAGNESIUM/ZINC [Concomitant]
  4. XARELTO [Suspect]
     Active Substance: RIVAROXABAN
     Indication: THROMBOSIS
     Route: 048
     Dates: start: 2017
  5. XARELTO [Suspect]
     Active Substance: RIVAROXABAN
     Indication: THROMBOSIS
     Route: 048
     Dates: start: 2017
  6. LEVOTHYROXINE. [Interacting]
     Active Substance: LEVOTHYROXINE
     Indication: THYROID DISORDER
     Route: 065
     Dates: start: 1990
  7. MAGNESIUM [Concomitant]
     Active Substance: MAGNESIUM
     Route: 065
  8. ZINC. [Concomitant]
     Active Substance: ZINC
     Indication: SLEEP DISORDER
  9. VITAMIN D [Concomitant]
     Active Substance: CHOLECALCIFEROL
     Route: 065

REACTIONS (11)
  - Blood thyroid stimulating hormone increased [Unknown]
  - Somnolence [Not Recovered/Not Resolved]
  - Phlebitis [Not Recovered/Not Resolved]
  - Drug interaction [Unknown]
  - Glycosylated haemoglobin increased [Unknown]
  - Rib fracture [Unknown]
  - Arthropathy [Not Recovered/Not Resolved]
  - Fatigue [Not Recovered/Not Resolved]
  - Product label issue [Unknown]
  - Body height decreased [Unknown]
  - Dysgeusia [Unknown]

NARRATIVE: CASE EVENT DATE: 2017
